FAERS Safety Report 15057379 (Version 1)
Quarter: 2018Q2

REPORT INFORMATION
  Report Type: Spontaneous
  Country: US (occurrence: US)
  Receive Date: 20180625
  Receipt Date: 20180625
  Transmission Date: 20180711
  Serious: No
  Sender: FDA-Public Use
  Company Number: US-SHIRE-US201822385

PATIENT
  Age: 77 Year

DRUGS (1)
  1. XIIDRA [Suspect]
     Active Substance: LIFITEGRAST
     Indication: PRODUCT USED FOR UNKNOWN INDICATION
     Dosage: 5%, 2X/DAY:BID
     Dates: start: 20180508, end: 20180508

REACTIONS (2)
  - Dysgeusia [Unknown]
  - Discomfort [Unknown]

NARRATIVE: CASE EVENT DATE: 20180508
